FAERS Safety Report 5645546-3 (Version None)
Quarter: 2008Q1

REPORT INFORMATION
  Report Type: 
  Country: None (occurrence: None)
  Receive Date: 20080229
  Receipt Date: 20080220
  Transmission Date: 20080703
  Serious: Yes (Life-Threatening, Hospitalization)
  Sender: FDA-Public Use
  Company Number: US-KINGPHARMUSA00001-K200800226

PATIENT

DRUGS (11)
  1. ALTACE [Suspect]
     Indication: HYPERTENSION
     Dosage: 1.25 MG, QD
     Route: 048
  2. GENTAMICINE                        /00047101/ [Suspect]
     Indication: URINARY TRACT INFECTION
     Dosage: 80 MG, BID
     Route: 048
     Dates: start: 20071031, end: 20071108
  3. ROCEPHIN [Suspect]
     Indication: URINARY TRACT INFECTION
     Dosage: 1 G POWDER AND SOLVENT FOR INJECTION
     Route: 030
     Dates: start: 20071109
  4. BACTRIM [Concomitant]
     Dosage: 2 U, QD
     Route: 048
     Dates: start: 20071029, end: 20071031
  5. OFLOCET    /00731801/ [Concomitant]
     Dosage: 2 U, QD
     Route: 048
     Dates: start: 20071025, end: 20071105
  6. ZOLADEX [Concomitant]
     Indication: PROSTATE CANCER
     Dosage: 10.8 MG, EVERY 3 MONTHS
     Route: 058
     Dates: start: 20060201
  7. PROSCAR [Concomitant]
     Indication: PROSTATIC ADENOMA
     Dosage: 5 MG, QD
     Route: 048
     Dates: start: 20060201
  8. XATRAL                             /00975301/ [Concomitant]
     Indication: PROSTATIC ADENOMA
     Dosage: 10 MG, QD
     Route: 048
     Dates: start: 20060201
  9. XATRAL                             /00975301/ [Concomitant]
     Dates: start: 20060201, end: 20071113
  10. SERESTA [Concomitant]
     Indication: INSOMNIA
     Dosage: 25 MG, QD
     Route: 048
  11. SECTRAL [Concomitant]
     Indication: HYPERTENSION
     Dosage: 100 MG, QD
     Route: 048

REACTIONS (14)
  - ACIDOSIS [None]
  - ANOREXIA [None]
  - BLOOD CREATININE INCREASED [None]
  - BLOOD SODIUM DECREASED [None]
  - CARDIOVASCULAR DISORDER [None]
  - CREATININE RENAL CLEARANCE DECREASED [None]
  - GAMMA-GLUTAMYLTRANSFERASE INCREASED [None]
  - GENERAL PHYSICAL HEALTH DETERIORATION [None]
  - HAEMOGLOBIN DECREASED [None]
  - HYPERKALAEMIA [None]
  - INTESTINAL POLYP [None]
  - NAUSEA [None]
  - RENAL FAILURE ACUTE [None]
  - URINARY TRACT INFECTION [None]
